FAERS Safety Report 4307883-4 (Version None)
Quarter: 2004Q1

REPORT INFORMATION
  Report Type: 
  Country: None (occurrence: None)
  Receive Date: 20040225
  Receipt Date: 20030509
  Transmission Date: 20041129
  Serious: Yes (Life-Threatening, Hospitalization, Disabling, Other)
  Sender: FDA-Public Use
  Company Number: WAES 0305USA01139

PATIENT
  Age: 68 Year
  Sex: Female
  Weight: 83.4619 kg

DRUGS (6)
  1. ZOCOR [Suspect]
     Indication: HYPERCHOLESTEROLAEMIA
     Dosage: SEE IMAGE
     Route: 048
     Dates: start: 20021001, end: 20030408
  2. ZOCOR [Suspect]
     Indication: HYPERCHOLESTEROLAEMIA
     Dosage: SEE IMAGE
     Route: 048
     Dates: start: 20010101
  3. ZOCOR [Suspect]
     Indication: HYPERCHOLESTEROLAEMIA
     Dosage: SEE IMAGE
     Route: 048
     Dates: start: 20030301
  4. BIAXIN [Concomitant]
  5. LEVAQUIN [Concomitant]
  6. LIPITOR [Concomitant]

REACTIONS (3)
  - INFLUENZA LIKE ILLNESS [None]
  - MYOPATHY [None]
  - PNEUMONIA [None]
